FAERS Safety Report 11725245 (Version 3)
Quarter: 2016Q1

REPORT INFORMATION
  Report Type: Spontaneous
  Country: US (occurrence: US)
  Receive Date: 20151111
  Receipt Date: 20160203
  Transmission Date: 20160525
  Serious: No
  Sender: FDA-Public Use
  Company Number: US-UCBSA-2015014525

PATIENT
  Age: 74 Year
  Sex: Male
  Weight: 84.8 kg

DRUGS (13)
  1. ASPIRIN. [Concomitant]
     Active Substance: ASPIRIN
     Indication: PRODUCT USED FOR UNKNOWN INDICATION
     Dosage: 1 MG
  2. ESCITALOPRAM [Concomitant]
     Active Substance: ESCITALOPRAM OXALATE
     Indication: PRODUCT USED FOR UNKNOWN INDICATION
     Dosage: 5 MG
  3. TESTOSTERONE. [Concomitant]
     Active Substance: TESTOSTERONE
     Indication: PRODUCT USED FOR UNKNOWN INDICATION
     Dosage: UNK, MONTHLY (QM)
  4. DILANTIN [Concomitant]
     Active Substance: PHENYTOIN
     Indication: PRODUCT USED FOR UNKNOWN INDICATION
     Dosage: 300 MG, ONCE DAILY (QD)
  5. VIMPAT [Suspect]
     Active Substance: LACOSAMIDE
     Indication: SEIZURE
     Dosage: 50 MG, 2X/DAY (BID)
  6. FISH OIL [Concomitant]
     Active Substance: FISH OIL
     Indication: PRODUCT USED FOR UNKNOWN INDICATION
  7. KEPPRA [Suspect]
     Active Substance: LEVETIRACETAM
     Indication: SEIZURE
     Dosage: UNK
     Route: 042
     Dates: start: 201411, end: 201411
  8. CALTRATE [Concomitant]
     Active Substance: CALCIUM CARBONATE
     Indication: PRODUCT USED FOR UNKNOWN INDICATION
  9. PHENYTOIN. [Concomitant]
     Active Substance: PHENYTOIN
     Indication: PRODUCT USED FOR UNKNOWN INDICATION
     Dosage: 300 MG, ONCE DAILY (QD) (EVERY NIGHT)
  10. KEPPRA [Suspect]
     Active Substance: LEVETIRACETAM
     Indication: SEIZURE
     Dosage: 500 MG, 2X/DAY (BID)
     Dates: start: 201411, end: 201502
  11. VITAMINS [Concomitant]
     Active Substance: VITAMINS
     Indication: PRODUCT USED FOR UNKNOWN INDICATION
  12. LAMICTAL XR [Concomitant]
     Active Substance: LAMOTRIGINE
     Indication: PRODUCT USED FOR UNKNOWN INDICATION
     Dosage: 200 MG
  13. CENTRUM SILVER [Concomitant]
     Active Substance: MINERALS\VITAMINS
     Indication: PRODUCT USED FOR UNKNOWN INDICATION

REACTIONS (7)
  - Hyperhidrosis [Unknown]
  - Adverse drug reaction [Not Recovered/Not Resolved]
  - Abnormal behaviour [Unknown]
  - Seizure [Unknown]
  - Visual impairment [Unknown]
  - Personality change [Unknown]
  - Aphasia [Unknown]

NARRATIVE: CASE EVENT DATE: 201411
